FAERS Safety Report 22115221 (Version 3)
Quarter: 2023Q2

REPORT INFORMATION
  Report Type: Spontaneous
  Country: US (occurrence: US)
  Receive Date: 20230320
  Receipt Date: 20230426
  Transmission Date: 20230721
  Serious: No
  Sender: FDA-Public Use
  Company Number: US-PFIZER INC-202300114981

PATIENT
  Age: 88 Year
  Sex: Female
  Weight: 70.295 kg

DRUGS (1)
  1. PAXLOVID [Suspect]
     Active Substance: NIRMATRELVIR\RITONAVIR
     Indication: COVID-19 treatment
     Dosage: UNK
     Route: 048
     Dates: start: 20230301, end: 20230306

REACTIONS (4)
  - Product label confusion [Unknown]
  - Product packaging confusion [Unknown]
  - Incorrect dose administered [Unknown]
  - Product dose confusion [Unknown]

NARRATIVE: CASE EVENT DATE: 20230306
